FAERS Safety Report 10487390 (Version 1)
Quarter: 2014Q4

REPORT INFORMATION
  Report Type: Spontaneous
  Country: BR (occurrence: BR)
  Receive Date: 20141001
  Receipt Date: 20141001
  Transmission Date: 20150528
  Serious: Yes (Other)
  Sender: FDA-Public Use
  Company Number: BR-PFIZER INC-2014266499

PATIENT
  Age: 48 Year
  Sex: Male
  Weight: 73 kg

DRUGS (6)
  1. LOSARTAN [Concomitant]
     Active Substance: LOSARTAN
     Indication: HYPERTENSION
     Dosage: 1 TABLET, DAILY
     Dates: start: 2013
  2. NEXIUM [Concomitant]
     Active Substance: ESOMEPRAZOLE MAGNESIUM
     Indication: OESOPHAGEAL DISORDER
     Dosage: 1 TABLET, DAILY
     Dates: start: 2013
  3. LYRICA [Suspect]
     Active Substance: PREGABALIN
     Dosage: 1 CAPSULE OF 75 MG, 2X/DAY
     Route: 048
     Dates: start: 2012, end: 2013
  4. OLCADIL [Concomitant]
     Active Substance: CLOXAZOLAM
     Indication: ANXIOLYTIC THERAPY
     Dosage: 1 TABLET PER DAY
     Dates: start: 2013
  5. CELEBRA [Suspect]
     Active Substance: CELECOXIB
     Dosage: 1 CAPSULE OF 200 MG, 2X/DAY
     Route: 048
     Dates: start: 2012, end: 2013
  6. DOMPERIDONE [Concomitant]
     Active Substance: DOMPERIDONE
     Indication: GASTRIC DISORDER
     Dosage: 1 TABLET, DAILY
     Dates: start: 2013

REACTIONS (2)
  - Emphysema [Unknown]
  - Bladder cancer [Unknown]

NARRATIVE: CASE EVENT DATE: 201212
